FAERS Safety Report 22892535 (Version 6)
Quarter: 2023Q4

REPORT INFORMATION
  Report Type: Report from Study
  Country: CL (occurrence: CL)
  Receive Date: 20230901
  Receipt Date: 20231215
  Transmission Date: 20240109
  Serious: Yes (Hospitalization, Other)
  Sender: FDA-Public Use
  Company Number: CL-002147023-NVSC2023CL168380

PATIENT
  Age: 43 Year
  Sex: Female

DRUGS (2)
  1. KISQALI [Suspect]
     Active Substance: RIBOCICLIB
     Indication: Breast cancer
     Dosage: 600 MG, QD (3 TABLET OF 200MG)
     Route: 048
     Dates: start: 20230722
  2. LETROZOLE [Suspect]
     Active Substance: LETROZOLE
     Indication: Product used for unknown indication
     Dosage: UNK (IN AFTERNOON)
     Route: 065

REACTIONS (20)
  - Hypersensitivity [Unknown]
  - Urticaria [Unknown]
  - Peripheral swelling [Unknown]
  - Swelling face [Unknown]
  - Tachycardia [Unknown]
  - Hepatitis [Unknown]
  - Metastases to neck [Unknown]
  - Pain [Unknown]
  - Chest discomfort [Unknown]
  - Stress [Unknown]
  - Chest pain [Not Recovered/Not Resolved]
  - Feeling abnormal [Unknown]
  - Discomfort [Unknown]
  - Disorientation [Unknown]
  - Decreased immune responsiveness [Unknown]
  - Memory impairment [Unknown]
  - Malaise [Unknown]
  - Asthenia [Unknown]
  - Headache [Unknown]
  - Malaise [Unknown]
